FAERS Safety Report 5212637-0 (Version None)
Quarter: 2007Q1

REPORT INFORMATION
  Report Type: 
  Country: None (occurrence: None)
  Receive Date: 20070118
  Receipt Date: 20070108
  Transmission Date: 20070707
  Serious: Yes (Hospitalization)
  Sender: FDA-Public Use
  Company Number: FR-PFIZER INC-2007002811

PATIENT
  Age: 34 Year
  Sex: Male
  Weight: 60 kg

DRUGS (6)
  1. TRIFLUCAN [Suspect]
     Indication: FUNGAL INFECTION
     Route: 042
     Dates: start: 20060927, end: 20061006
  2. AMIKLIN [Suspect]
     Route: 042
     Dates: start: 20060927, end: 20061002
  3. CORDARONE [Suspect]
     Route: 048
     Dates: start: 20060927, end: 20061005
  4. LASIX [Suspect]
     Indication: RENAL FAILURE ACUTE
     Route: 042
     Dates: start: 20060927, end: 20060928
  5. TIENAM [Suspect]
     Route: 042
     Dates: start: 20060927, end: 20060928
  6. VANCOMYCIN [Suspect]
     Route: 042
     Dates: start: 20060927, end: 20061014

REACTIONS (2)
  - DERMATITIS BULLOUS [None]
  - THROMBOCYTOPENIA [None]
